FAERS Safety Report 7651153-3 (Version None)
Quarter: 2011Q3

REPORT INFORMATION
  Report Type: 
  Country: None (occurrence: None)
  Receive Date: 20110727
  Receipt Date: 20110715
  Transmission Date: 20111222
  Serious: Yes (Hospitalization)
  Sender: FDA-Public Use
  Company Number: DSJ-2011-14661

PATIENT
  Age: 65 Year
  Sex: Male

DRUGS (6)
  1. ALLOPURINOL [Concomitant]
  2. BENICAR [Suspect]
     Indication: HYPERTENSION
     Dosage: 40 MG (40 MG, 1 IN 1 D), PER ORAL
     Route: 048
     Dates: start: 20101101
  3. RANITIDINE [Concomitant]
  4. NIMESULIDE (NIMESULIDE) (NIMESULIDE) [Concomitant]
  5. METHYLDOPA [Concomitant]
  6. AMLODIPINE [Concomitant]

REACTIONS (2)
  - CONSTIPATION [None]
  - HIP ARTHROPLASTY [None]
